FAERS Safety Report 16064988 (Version 2)
Quarter: 2019Q1

REPORT INFORMATION
  Report Type: Report from Study
  Country: None (occurrence: GB)
  Receive Date: 20190313
  Receipt Date: 20190318
  Transmission Date: 20190418
  Serious: Yes (Hospitalization)
  Sender: FDA-Public Use
  Company Number: GB-ABBVIE-19K-167-2688253-00

PATIENT
  Age: 62 Year
  Sex: Female
  Weight: 70.4 kg

DRUGS (2)
  1. HUMIRA [Suspect]
     Active Substance: ADALIMUMAB
     Indication: CROHN^S DISEASE
     Route: 058
     Dates: end: 20181221
  2. HUMIRA [Suspect]
     Active Substance: ADALIMUMAB
     Route: 058
     Dates: start: 20190123

REACTIONS (8)
  - Pain [Unknown]
  - Fall [Unknown]
  - Feeling abnormal [Unknown]
  - Upper limb fracture [Recovering/Resolving]
  - Joint dislocation [Recovering/Resolving]
  - Upper limb fracture [Unknown]
  - Accident [Unknown]
  - Back injury [Unknown]

NARRATIVE: CASE EVENT DATE: 2018
